FAERS Safety Report 20815788 (Version 1)
Quarter: 2022Q2

REPORT INFORMATION
  Report Type: Report from Study
  Country: US (occurrence: US)
  Receive Date: 20220511
  Receipt Date: 20220511
  Transmission Date: 20220721
  Serious: Yes (Other)
  Sender: FDA-Public Use
  Company Number: US-BRISTOL-MYERS SQUIBB COMPANY-2022-027502

PATIENT
  Age: 58 Year
  Sex: Female
  Weight: 78.02 kg

DRUGS (1)
  1. POMALYST [Suspect]
     Active Substance: POMALIDOMIDE
     Indication: Plasma cell myeloma
     Dosage: 1 CAPSULE EVERY OTHER MORNING.
     Route: 048
     Dates: start: 20190922

REACTIONS (3)
  - Osteitis [Unknown]
  - Lumbar vertebral fracture [Unknown]
  - Musculoskeletal pain [Unknown]
